FAERS Safety Report 7055886-1 (Version None)
Quarter: 2010Q4

REPORT INFORMATION
  Report Type: 
  Country: None (occurrence: None)
  Receive Date: 20101021
  Receipt Date: 20101008
  Transmission Date: 20110411
  Serious: Yes (Other)
  Sender: FDA-Public Use
  Company Number: BE-BRACCO-000014

PATIENT
  Age: 55 Year
  Sex: Female

DRUGS (1)
  1. MULTIHANCE [Suspect]
     Indication: NUCLEAR MAGNETIC RESONANCE IMAGING
     Dates: start: 20100930, end: 20100930

REACTIONS (4)
  - NAUSEA [None]
  - OFF LABEL USE [None]
  - PRESYNCOPE [None]
  - VOMITING [None]
